FAERS Safety Report 10297538 (Version 2)
Quarter: 2014Q3

REPORT INFORMATION
  Report Type: Spontaneous
  Country: TR (occurrence: TR)
  Receive Date: 20140711
  Receipt Date: 20140724
  Transmission Date: 20150326
  Serious: Yes (Other)
  Sender: FDA-Public Use
  Company Number: TR-ROCHE-1431332

PATIENT
  Sex: Female
  Weight: 58.07 kg

DRUGS (8)
  1. LUCENTIS [Suspect]
     Active Substance: RANIBIZUMAB
     Indication: PRODUCT USED FOR UNKNOWN INDICATION
     Dosage: MOST RECENT DOSE: 22/APR/2014
     Route: 050
     Dates: start: 200608
  2. CARDENE [Concomitant]
     Active Substance: NICARDIPINE HYDROCHLORIDE
  3. ASPIRIN. [Concomitant]
     Active Substance: ASPIRIN
  4. BELOC [Concomitant]
     Active Substance: METOPROLOL TARTRATE
  5. HYZAAR [Concomitant]
     Active Substance: HYDROCHLOROTHIAZIDE\LOSARTAN POTASSIUM
  6. LACIPIL [Concomitant]
     Active Substance: LACIDIPINE
  7. XALATAN [Concomitant]
     Active Substance: LATANOPROST
  8. TIMOPTIC [Concomitant]
     Active Substance: TIMOLOL MALEATE

REACTIONS (2)
  - Humerus fracture [Recovering/Resolving]
  - Fall [Unknown]

NARRATIVE: CASE EVENT DATE: 20140629
